FAERS Safety Report 4544046-1 (Version None)
Quarter: 2005Q1

REPORT INFORMATION
  Report Type: 
  Country: None (occurrence: None)
  Receive Date: 20050104
  Receipt Date: 20041224
  Transmission Date: 20050727
  Serious: Yes (Life-Threatening, Hospitalization)
  Sender: FDA-Public Use
  Company Number: GB-MERCK-0412GBR00202

PATIENT
  Age: 75 Year
  Sex: Female

DRUGS (7)
  1. DECADRON [Suspect]
     Indication: BRAIN OEDEMA
     Route: 048
     Dates: start: 20041120
  2. ASPIRIN [Suspect]
     Indication: CEREBROVASCULAR ACCIDENT
     Route: 048
     Dates: start: 20030916
  3. LITHIUM CARBONATE [Concomitant]
     Indication: BIPOLAR DISORDER
     Route: 048
     Dates: start: 20030217
  4. LANSOPRAZOLE [Concomitant]
     Indication: DYSPEPSIA
     Route: 048
     Dates: start: 20041123
  5. ATORVASTATIN CALCIUM [Concomitant]
     Indication: CEREBROVASCULAR ACCIDENT
     Route: 048
     Dates: start: 20041116
  6. BECLOMETHASONE DIPROPIONATE [Concomitant]
     Indication: ASTHMA
     Route: 055
     Dates: start: 19950417
  7. ALBUTEROL [Concomitant]
     Indication: ASTHMA
     Route: 055
     Dates: start: 19950417

REACTIONS (3)
  - ABDOMINAL PAIN [None]
  - DUODENAL ULCER PERFORATION [None]
  - VOMITING [None]
